FAERS Safety Report 24169759 (Version 1)
Quarter: 2024Q3

REPORT INFORMATION
  Report Type: Spontaneous
  Country: US (occurrence: None)
  Receive Date: 20240803
  Receipt Date: 20240803
  Transmission Date: 20241017
  Serious: No
  Sender: ASTRAZENECA
  Company Number: 2024A168456

PATIENT
  Sex: Female

DRUGS (3)
  1. FULVESTRANT [Suspect]
     Active Substance: FULVESTRANT
     Route: 030
     Dates: end: 20240206
  2. FULVESTRANT [Suspect]
     Active Substance: FULVESTRANT
     Route: 030
  3. IBRANCE [Suspect]
     Active Substance: PALBOCICLIB
     Indication: Breast cancer
     Route: 048
     Dates: start: 20231110

REACTIONS (7)
  - Full blood count abnormal [Recovering/Resolving]
  - Fatigue [Unknown]
  - Nausea [Unknown]
  - Stomatitis [Unknown]
  - Alopecia [Unknown]
  - Decreased appetite [Unknown]
  - Dizziness [Unknown]
